FAERS Safety Report 5312395-5 (Version None)
Quarter: 2007Q2

REPORT INFORMATION
  Report Type: 
  Country: None (occurrence: None)
  Receive Date: 20070430
  Receipt Date: 20060926
  Transmission Date: 20071010
  Serious: No
  Sender: FDA-Public Use
  Company Number: 2006UW18789

PATIENT
  Age: 59 Year
  Sex: Female
  Weight: 61.2 kg

DRUGS (5)
  1. NEXIUM [Suspect]
     Route: 048
     Dates: start: 20040901
  2. TOPROL-XL [Concomitant]
     Route: 048
  3. IMDUR [Concomitant]
  4. LOPID [Concomitant]
  5. XANAX [Concomitant]

REACTIONS (2)
  - BURNING SENSATION [None]
  - FOREIGN BODY TRAUMA [None]
